FAERS Safety Report 16211760 (Version 2)
Quarter: 2020Q1

REPORT INFORMATION
  Report Type: Spontaneous
  Country: CA (occurrence: CA)
  Receive Date: 20190418
  Receipt Date: 20200212
  Transmission Date: 20200409
  Serious: Yes (Other)
  Sender: FDA-Public Use
  Company Number: CA-AUROBINDO-AUR-APL-2019-021512

PATIENT
  Sex: Male

DRUGS (26)
  1. OLANZAPINE. [Suspect]
     Active Substance: OLANZAPINE
     Dosage: 40 MILLIGRAM, ONCE A DAY
     Route: 065
  2. QUETIAPINE. [Concomitant]
     Active Substance: QUETIAPINE
     Indication: PRODUCT USED FOR UNKNOWN INDICATION
     Dosage: UNK
     Route: 065
  3. SAPHRIS [Concomitant]
     Active Substance: ASENAPINE MALEATE
     Indication: PRODUCT USED FOR UNKNOWN INDICATION
     Dosage: UNK
     Route: 065
  4. VALPROATE [Concomitant]
     Active Substance: VALPROIC ACID
     Indication: PRODUCT USED FOR UNKNOWN INDICATION
     Dosage: UNK
     Route: 065
  5. LITHIUM. [Suspect]
     Active Substance: LITHIUM
     Indication: AFFECTIVE DISORDER
     Dosage: 1800 MILLIGRAM, ONCE A DAY
     Route: 065
  6. LITHIUM. [Suspect]
     Active Substance: LITHIUM
     Dosage: 1050 MILLIGRAM, ONCE A DAY
     Route: 065
  7. LITHIUM. [Suspect]
     Active Substance: LITHIUM
     Dosage: 2400 MILLIGRAM, ONCE A DAY
     Route: 065
  8. RISPERIDONE. [Suspect]
     Active Substance: RISPERIDONE
     Indication: PSYCHOTIC DISORDER
     Dosage: 3 MILLIGRAM, ONCE A DAY
     Route: 065
  9. ABILIFY [Concomitant]
     Active Substance: ARIPIPRAZOLE
     Indication: PRODUCT USED FOR UNKNOWN INDICATION
     Dosage: UNK
     Route: 065
  10. PERPHENAZINE. [Concomitant]
     Active Substance: PERPHENAZINE
     Indication: PRODUCT USED FOR UNKNOWN INDICATION
     Dosage: UNK
     Route: 065
  11. CITALOPRAM [Concomitant]
     Active Substance: CITALOPRAM HYDROBROMIDE
     Indication: PRODUCT USED FOR UNKNOWN INDICATION
     Dosage: UNK
     Route: 065
  12. FLUOXETINE [Concomitant]
     Active Substance: FLUOXETINE HYDROCHLORIDE
     Indication: PRODUCT USED FOR UNKNOWN INDICATION
     Dosage: UNK
     Route: 065
  13. TRIFLUOPERAZINE [Concomitant]
     Active Substance: TRIFLUOPERAZINE HYDROCHLORIDE
     Indication: PRODUCT USED FOR UNKNOWN INDICATION
     Dosage: UNK
     Route: 065
  14. ZIPRASIDONE HYDROCHLORIDE. [Concomitant]
     Active Substance: ZIPRASIDONE HYDROCHLORIDE
     Indication: PRODUCT USED FOR UNKNOWN INDICATION
     Dosage: UNK
     Route: 065
  15. OLANZAPINE. [Suspect]
     Active Substance: OLANZAPINE
     Indication: PSYCHOTIC DISORDER
     Dosage: 15 MILLIGRAM, ONCE A DAY
     Route: 065
  16. RISPERIDONE. [Suspect]
     Active Substance: RISPERIDONE
     Dosage: 4 MILLIGRAM, ONCE A DAY
     Route: 065
  17. AMISULPRIDE [Concomitant]
     Active Substance: AMISULPRIDE
     Indication: PRODUCT USED FOR UNKNOWN INDICATION
     Dosage: UNK
     Route: 065
  18. HALOPERIDOL. [Concomitant]
     Active Substance: HALOPERIDOL
     Indication: PRODUCT USED FOR UNKNOWN INDICATION
     Dosage: UNK
     Route: 065
  19. OLANZAPINE. [Suspect]
     Active Substance: OLANZAPINE
     Dosage: 20 MILLIGRAM, ONCE A DAY
     Route: 065
  20. CLOZAPINE. [Suspect]
     Active Substance: CLOZAPINE
     Indication: PSYCHOTIC DISORDER
     Dosage: 350 MILLIGRAM, ONCE A DAY
     Route: 065
  21. FLUPENTIXOL [Concomitant]
     Active Substance: FLUPENTIXOL
     Indication: PRODUCT USED FOR UNKNOWN INDICATION
     Dosage: UNK
     Route: 065
  22. LOXAPINE. [Concomitant]
     Active Substance: LOXAPINE
     Indication: PRODUCT USED FOR UNKNOWN INDICATION
     Dosage: UNK
     Route: 065
  23. THIORIDAZINE [Concomitant]
     Active Substance: THIORIDAZINE
     Indication: PRODUCT USED FOR UNKNOWN INDICATION
     Dosage: UNK
     Route: 065
  24. CLOMIPRAMINE [Concomitant]
     Active Substance: CLOMIPRAMINE
     Indication: PRODUCT USED FOR UNKNOWN INDICATION
     Dosage: UNK
     Route: 065
  25. RISPERIDONE. [Suspect]
     Active Substance: RISPERIDONE
     Dosage: 8 MILLIGRAM, ONCE A DAY
     Route: 065
  26. GABAPENTIN. [Concomitant]
     Active Substance: GABAPENTIN
     Indication: PRODUCT USED FOR UNKNOWN INDICATION
     Dosage: UNK
     Route: 065

REACTIONS (6)
  - Obsessive-compulsive disorder [Unknown]
  - Drug ineffective [Unknown]
  - Leukopenia [Unknown]
  - Dyslipidaemia [Unknown]
  - Hypertension [Unknown]
  - Obesity [Unknown]
